FAERS Safety Report 9005544 (Version 1)
Quarter: 2013Q1

REPORT INFORMATION
  Report Type: Spontaneous
  Country: FR (occurrence: FR)
  Receive Date: 20130109
  Receipt Date: 20130109
  Transmission Date: 20140127
  Serious: Yes (Hospitalization)
  Sender: FDA-Public Use
  Company Number: FR-009507513-2006-01-0274

PATIENT
  Age: 49 Year
  Sex: Female
  Weight: 60 kg

DRUGS (7)
  1. AERIUS [Suspect]
     Indication: RHINITIS ALLERGIC
     Dosage: DOSE: 5 MG QD, DURATION: 9 MONTH(S)
     Route: 048
     Dates: start: 20050201, end: 20051020
  2. SINGULAIR [Suspect]
     Dosage: DOSE: UNKNOWM, DURATION: 9 MONTH(S)
     Route: 048
     Dates: start: 20050201, end: 20051020
  3. SYMBICORT [Suspect]
     Indication: ASTHMA
     Dosage: DOSE: 400 ?G BID, DURATION: 9 MONTH(S)
     Route: 055
     Dates: start: 20050201, end: 20051020
  4. XOLAIR [Suspect]
     Indication: ASTHMA
     Dosage: DOSE: 200 MG QM, DURATION: 3 MONTH(S)
     Route: 058
     Dates: start: 20050601, end: 20050905
  5. BRICANYL [Suspect]
     Indication: ASTHMA
     Dosage: DOSE: 5 MG BID, DURATION: 10 MONTH(S)
     Route: 065
     Dates: start: 20050101, end: 20051020
  6. AMINOPHYLLINE\THEOPHYLLINE [Suspect]
     Indication: ASTHMA
     Dosage: DOSE: 300 MG QD, DURATION: 9 MONTH(S)
     Route: 048
     Dates: start: 20050201, end: 20051020
  7. [COMPOSITION UNSPECIFIED] [Concomitant]

REACTIONS (2)
  - Peripheral artery thrombosis [Unknown]
  - Insomnia [Unknown]
